FAERS Safety Report 5061397-5 (Version None)
Quarter: 2006Q3

REPORT INFORMATION
  Report Type: 
  Country: None (occurrence: None)
  Receive Date: 20060719
  Receipt Date: 20060719
  Transmission Date: 20061208
  Serious: Yes (Hospitalization)
  Sender: FDA-Public Use
  Company Number: None

PATIENT
  Age: 68 Year
  Sex: Male

DRUGS (10)
  1. ETODOLAC [Suspect]
     Indication: PAIN
     Dosage: 300-600 MG BID PRN
     Dates: start: 20020901
  2. GABAPENTIN [Concomitant]
  3. ASPIRIN [Concomitant]
  4. ATENOLOL [Concomitant]
  5. BACLOFEN [Concomitant]
  6. CITALOPRAM HYDROBROMIDE [Concomitant]
  7. VARDENAFIL [Concomitant]
  8. TRAZODONE HCL [Concomitant]
  9. OMEPRAZOLE [Concomitant]
  10. ZOCOR [Concomitant]

REACTIONS (1)
  - RENAL FAILURE ACUTE [None]
